FAERS Safety Report 6023613-2 (Version None)
Quarter: 2008Q4

REPORT INFORMATION
  Report Type: 
  Country: None (occurrence: None)
  Receive Date: 20081226
  Receipt Date: 20081226
  Transmission Date: 20090506
  Serious: Yes (Other)
  Sender: FDA-Public Use
  Company Number: None

PATIENT
  Age: 82 Year
  Sex: Female
  Weight: 49.8957 kg

DRUGS (1)
  1. CARAFATE [Suspect]
     Indication: ULCER
     Dosage: 2 TEASPOONFUL - 1 GRAM 2X/DAY PO
     Route: 048
     Dates: start: 20081222, end: 20081223

REACTIONS (9)
  - BURNING SENSATION [None]
  - CARDIAC FIBRILLATION [None]
  - DIZZINESS [None]
  - HEADACHE [None]
  - MIGRAINE WITH AURA [None]
  - NAUSEA [None]
  - SOMNOLENCE [None]
  - URTICARIA [None]
  - VISION BLURRED [None]
